FAERS Safety Report 4932858-1 (Version None)
Quarter: 2006Q1

REPORT INFORMATION
  Report Type: 
  Country: None (occurrence: None)
  Receive Date: 20060301
  Receipt Date: 20060301
  Transmission Date: 20060701
  Serious: Yes (Other)
  Sender: FDA-Public Use
  Company Number: None

PATIENT
  Age: 75 Year
  Sex: Male
  Weight: 75.7507 kg

DRUGS (5)
  1. TAXOTERE [Suspect]
     Indication: BLADDER CANCER
     Dosage: 75 MG/M2
     Dates: start: 20050912
  2. TAXOTERE [Suspect]
     Indication: METASTASIS
     Dosage: 75 MG/M2
     Dates: start: 20050912
  3. GLEEVEC [Suspect]
     Dosage: 600 MG
     Dates: start: 20050908, end: 20050913
  4. AVALIDE [Concomitant]
  5. NASONEX [Concomitant]

REACTIONS (2)
  - NEUTROPHIL COUNT DECREASED [None]
  - WHITE BLOOD CELL COUNT ABNORMAL [None]
